FAERS Safety Report 4264403-0 (Version None)
Quarter: 2004Q1

REPORT INFORMATION
  Report Type: 
  Country: None (occurrence: None)
  Receive Date: 20040102
  Receipt Date: 20031217
  Transmission Date: 20041129
  Serious: Yes (Hospitalization)
  Sender: FDA-Public Use
  Company Number: 185425

PATIENT
  Age: 60 Year
  Sex: Female

DRUGS (9)
  1. AVONEX [Suspect]
     Indication: MULTIPLE SCLEROSIS
     Dosage: 30 MCG QW IM
     Route: 030
     Dates: start: 20010101
  2. LIPITOR [Concomitant]
  3. PLAVIX [Concomitant]
  4. DETROL [Concomitant]
  5. HYZAAR [Concomitant]
  6. ELAVIL [Concomitant]
  7. NORVASC [Concomitant]
  8. BACLOFEN [Concomitant]
  9. METOPROLOL [Concomitant]

REACTIONS (1)
  - MYOCARDIAL INFARCTION [None]
